FAERS Safety Report 23227358 (Version 3)
Quarter: 2024Q1

REPORT INFORMATION
  Report Type: Spontaneous
  Country: DE (occurrence: DE)
  Receive Date: 20231124
  Receipt Date: 20240216
  Transmission Date: 20240410
  Serious: Yes (Other)
  Sender: FDA-Public Use
  Company Number: DE-Laboratoires BESINS-INTERNATIONAL-2023-27559

PATIENT
  Age: 54 Year
  Sex: Female
  Weight: 54 kg

DRUGS (4)
  1. ESTRADIOL [Suspect]
     Active Substance: ESTRADIOL
     Indication: Hormone therapy
     Dosage: DOSAGE TEXT: 1 HUB / 1 STROKE
     Route: 065
     Dates: start: 2023
  2. PROGESTERONE [Suspect]
     Active Substance: PROGESTERONE
     Indication: Hormone therapy
     Dosage: DOSAGE TEXT: TAKING IT AGAIN FOR 10 DAYS
     Route: 065
     Dates: start: 2023
  3. PROGESTERONE [Suspect]
     Active Substance: PROGESTERONE
     Indication: Hormone therapy
     Dosage: DOSAGE TEXT: BEFORE GOING TO BED, FREQUENCY: 1DAYS
     Route: 065
  4. PROGESTERONE [Suspect]
     Active Substance: PROGESTERONE
     Indication: Hormone therapy
     Dosage: DOSAGE TEXT: SUPPOSED TO TAKE IT FOR 18 DAYS AND THEN PAUSE AGAIN
     Route: 065
     Dates: end: 2023

REACTIONS (3)
  - Postmenopausal haemorrhage [Unknown]
  - Underdose [Unknown]
  - Inappropriate schedule of product administration [Unknown]

NARRATIVE: CASE EVENT DATE: 20230101
